FAERS Safety Report 7312240-2 (Version None)
Quarter: 2011Q1

REPORT INFORMATION
  Report Type: 
  Country: None (occurrence: None)
  Receive Date: 20110224
  Receipt Date: 20110216
  Transmission Date: 20110831
  Serious: Yes (Other)
  Sender: FDA-Public Use
  Company Number: A0913861A

PATIENT
  Age: 2 Year
  Sex: Male

DRUGS (1)
  1. CEFTIN [Suspect]
     Route: 065

REACTIONS (4)
  - PHARYNGEAL OEDEMA [None]
  - DYSPNOEA [None]
  - LIP SWELLING [None]
  - ANAPHYLACTIC REACTION [None]
